FAERS Safety Report 6370099-4 (Version None)
Quarter: 2009Q3

REPORT INFORMATION
  Report Type: 
  Country: None (occurrence: None)
  Receive Date: 20090923
  Receipt Date: 20070626
  Transmission Date: 20100115
  Serious: Yes (Disabling)
  Sender: FDA-Public Use
  Company Number: US-ASTRAZENECA-2006UW21411

PATIENT
  Age: 607 Month
  Sex: Male
  Weight: 127 kg

DRUGS (10)
  1. SEROQUEL [Suspect]
     Indication: DEPRESSION
     Route: 048
     Dates: start: 19960101, end: 20060101
  2. SEROQUEL [Suspect]
     Indication: ANXIETY
     Route: 048
     Dates: start: 19960101, end: 20060101
  3. SEROQUEL [Suspect]
     Dosage: 100 TO 200 MG
     Route: 048
     Dates: start: 20040119
  4. SEROQUEL [Suspect]
     Dosage: 100 TO 200 MG
     Route: 048
     Dates: start: 20040119
  5. LORAZEPAM [Concomitant]
     Dosage: 1 TO 2 MG
     Route: 048
     Dates: start: 20011105
  6. CLONAZEPAM [Concomitant]
     Dosage: 2 MG TO TAKE 1/2 TO ONE H.S
     Route: 048
     Dates: start: 20060515
  7. WELLBUTRIN XL [Concomitant]
     Route: 048
     Dates: start: 19990119
  8. HYDROCHLOROTHIAZIDE [Concomitant]
     Route: 048
     Dates: start: 20041021
  9. BUSPAR [Concomitant]
     Dosage: 15 MG FLUCTUATING
     Route: 048
     Dates: start: 20021230
  10. DIOVAN [Concomitant]
     Route: 048
     Dates: start: 20050517

REACTIONS (2)
  - DIABETES MELLITUS [None]
  - HYPERGLYCAEMIA [None]
